FAERS Safety Report 4994269-2 (Version None)
Quarter: 2006Q1

REPORT INFORMATION
  Report Type: 
  Country: None (occurrence: None)
  Receive Date: 20060314
  Receipt Date: 20050714
  Transmission Date: 20060701
  Serious: Yes (Other)
  Sender: FDA-Public Use
  Company Number: 200512453BCC

PATIENT
  Age: 23 Year
  Sex: Female
  Weight: 111.1313 kg

DRUGS (3)
  1. ALEVE (CAPLET) [Suspect]
     Indication: BACK PAIN
     Dosage: 220 MG, ONCE, ORAL
     Route: 048
     Dates: start: 20050606
  2. CIPROFLOXACIN [Concomitant]
  3. COPAXONE [Concomitant]

REACTIONS (6)
  - BLOOD PRESSURE INCREASED [None]
  - FLUSHING [None]
  - HYPERSENSITIVITY [None]
  - PRURITUS GENERALISED [None]
  - URTICARIA [None]
  - WHEEZING [None]
